FAERS Safety Report 6593783-6 (Version None)
Quarter: 2010Q1

REPORT INFORMATION
  Report Type: 
  Country: None (occurrence: None)
  Receive Date: 20100212
  Receipt Date: 20100212
  Transmission Date: 20100710
  Serious: Yes (Other)
  Sender: FDA-Public Use
  Company Number: 003589

PATIENT
  Age: 25 Year
  Sex: Female

DRUGS (1)
  1. KEPPRA [Suspect]
     Dosage: UP TO 1000MG DAILY; INTRAVENOUS (NOT OTHERWISE SPECIFIED)

REACTIONS (3)
  - OVARIAN CYST [None]
  - OVARIAN GERM CELL TERATOMA BENIGN [None]
  - PARANEOPLASTIC ENCEPHALOMYELITIS [None]
